FAERS Safety Report 14874722 (Version 1)
Quarter: 2018Q2

REPORT INFORMATION
  Report Type: Spontaneous
  Country: PT (occurrence: PT)
  Receive Date: 20180510
  Receipt Date: 20180510
  Transmission Date: 20180711
  Serious: Yes (Other)
  Sender: FDA-Public Use
  Company Number: PT-WEST-WARD PHARMACEUTICALS CORP.-PT-H14001-18-03727

PATIENT
  Age: 1 Year
  Sex: Female
  Weight: 12.6 kg

DRUGS (1)
  1. CEFUROXIMA HIKMA [Suspect]
     Active Substance: CEFUROXIME
     Indication: INTERVERTEBRAL DISCITIS
     Dosage: 170 MG/KG/DAILY, 8/8 HOURS
     Route: 042
     Dates: start: 20180206, end: 20180226

REACTIONS (2)
  - Rash maculo-papular [Recovered/Resolved]
  - Pyrexia [Recovered/Resolved]

NARRATIVE: CASE EVENT DATE: 20180225
